FAERS Safety Report 13461379 (Version 1)
Quarter: 2017Q2

REPORT INFORMATION
  Report Type: Report from Study
  Country: US (occurrence: US)
  Receive Date: 20170420
  Receipt Date: 20170420
  Transmission Date: 20170830
  Serious: Yes (Hospitalization, Other)
  Sender: FDA-Public Use
  Company Number: US-GILEAD-2017-0265365

PATIENT
  Age: 63 Year
  Sex: Female

DRUGS (3)
  1. AMBRISENTAN [Suspect]
     Active Substance: AMBRISENTAN
     Indication: PRODUCT USED FOR UNKNOWN INDICATION
     Dosage: 10 MG, QD
     Route: 065
     Dates: start: 20081209
  2. OXYGEN. [Concomitant]
     Active Substance: OXYGEN
  3. NIFEDIPINE. [Concomitant]
     Active Substance: NIFEDIPINE

REACTIONS (6)
  - Dyspnoea [Unknown]
  - Fatigue [Not Recovered/Not Resolved]
  - Pneumonia aspiration [Unknown]
  - Pneumonia [Unknown]
  - Unevaluable event [Unknown]
  - Oxygen consumption increased [Not Recovered/Not Resolved]
